FAERS Safety Report 4859994-2 (Version None)
Quarter: 2005Q4

REPORT INFORMATION
  Report Type: 
  Country: None (occurrence: None)
  Receive Date: 20051219
  Receipt Date: 20030605
  Transmission Date: 20060501
  Serious: Yes (Death, Hospitalization, Other)
  Sender: FDA-Public Use
  Company Number: US-MERCK-0306USA00751

PATIENT
  Age: 58 Year
  Sex: Male
  Weight: 100 kg

DRUGS (2)
  1. EXTRA STRENGTH TYLENOL [Concomitant]
     Route: 065
  2. VIOXX [Suspect]
     Route: 048
     Dates: start: 19991108, end: 20010312

REACTIONS (9)
  - ADVERSE EVENT [None]
  - ANGINA PECTORIS [None]
  - ARTERIOSCLEROSIS [None]
  - BENIGN PROSTATIC HYPERPLASIA [None]
  - BLOOD PRESSURE INCREASED [None]
  - CONVULSION [None]
  - DEPRESSION [None]
  - EMPHYSEMA [None]
  - HYPERTENSIVE HEART DISEASE [None]
